FAERS Safety Report 6800682-0 (Version None)
Quarter: 2010Q2

REPORT INFORMATION
  Report Type: 
  Country: None (occurrence: None)
  Receive Date: 20100629
  Receipt Date: 20100615
  Transmission Date: 20101027
  Serious: Yes (Death, Other)
  Sender: FDA-Public Use
  Company Number: GB-RANBAXY-2010RR-34416

PATIENT
  Age: 52 Year
  Sex: Male

DRUGS (8)
  1. FLUOXETINE [Suspect]
  2. CLOZARIL [Suspect]
     Indication: SCHIZOPHRENIA, PARANOID TYPE
     Dosage: UNK
     Route: 048
     Dates: start: 20020130
  3. CLOZARIL [Suspect]
     Dosage: 250 MG, UNK
     Route: 048
  4. CLOZARIL [Suspect]
     Dosage: 300 MG, UNK
  5. FERROUS SULFATE TAB [Concomitant]
  6. FOLIC ACID [Concomitant]
     Dosage: 5 MG, QD
  7. VITAMIN B-12 [Concomitant]
     Indication: ANAEMIA
  8. ARIPIPRAZOLE [Concomitant]

REACTIONS (25)
  - ANAEMIA VITAMIN B12 DEFICIENCY [None]
  - ANTIPSYCHOTIC DRUG LEVEL INCREASED [None]
  - APATHY [None]
  - ARTERIOSCLEROSIS CORONARY ARTERY [None]
  - BLOOD PRESSURE INCREASED [None]
  - CARDIAC DISORDER [None]
  - CARDIOMEGALY [None]
  - CONTUSION [None]
  - DEATH [None]
  - DEPRESSED MOOD [None]
  - DRUG INTERACTION [None]
  - HALLUCINATION, AUDITORY [None]
  - HEART RATE INCREASED [None]
  - HERNIA [None]
  - LEFT VENTRICULAR HYPERTROPHY [None]
  - LETHARGY [None]
  - MYOCARDIAL ISCHAEMIA [None]
  - PULMONARY CONGESTION [None]
  - PULMONARY FIBROSIS [None]
  - SALIVARY HYPERSECRETION [None]
  - SCHIZOPHRENIA, RESIDUAL TYPE [None]
  - SOCIAL AVOIDANT BEHAVIOUR [None]
  - STRESS [None]
  - SUICIDE ATTEMPT [None]
  - VENOUS INSUFFICIENCY [None]
